FAERS Safety Report 20623986 (Version 1)
Quarter: 2022Q1

REPORT INFORMATION
  Report Type: Spontaneous
  Country: CN (occurrence: None)
  Receive Date: 20220322
  Receipt Date: 20220322
  Transmission Date: 20220423
  Serious: Yes (Hospitalization)
  Sender: FDA-Public Use
  Company Number: CN-ROCHE-3049145

PATIENT
  Age: 56 Year
  Sex: Female
  Weight: 62 kg

DRUGS (16)
  1. AVASTIN [Suspect]
     Active Substance: BEVACIZUMAB
     Indication: Endometrial cancer
     Route: 065
     Dates: start: 20200909, end: 202012
  2. AVASTIN [Suspect]
     Active Substance: BEVACIZUMAB
     Route: 065
     Dates: start: 202101, end: 202102
  3. AVASTIN [Suspect]
     Active Substance: BEVACIZUMAB
     Route: 065
     Dates: start: 202103, end: 202105
  4. AVASTIN [Suspect]
     Active Substance: BEVACIZUMAB
     Route: 065
     Dates: start: 202109
  5. AVASTIN [Suspect]
     Active Substance: BEVACIZUMAB
     Route: 065
     Dates: start: 20211006
  6. AVASTIN [Suspect]
     Active Substance: BEVACIZUMAB
     Route: 065
     Dates: start: 20211115
  7. AVASTIN [Suspect]
     Active Substance: BEVACIZUMAB
     Route: 041
     Dates: start: 20220105
  8. PACLITAXEL [Concomitant]
     Active Substance: PACLITAXEL
     Indication: Endometrial cancer
     Dates: start: 202007, end: 202009
  9. PACLITAXEL [Concomitant]
     Active Substance: PACLITAXEL
     Dates: start: 202009, end: 202012
  10. CARBOPLATIN [Concomitant]
     Active Substance: CARBOPLATIN
     Indication: Endometrial cancer
     Route: 065
     Dates: start: 202007, end: 202009
  11. CARBOPLATIN [Concomitant]
     Active Substance: CARBOPLATIN
     Route: 065
     Dates: start: 202009, end: 202012
  12. SINTILIMAB [Concomitant]
     Active Substance: SINTILIMAB
     Indication: Endometrial cancer
     Route: 065
     Dates: start: 202103, end: 202105
  13. CYCLOPHOSPHAMIDE [Concomitant]
     Active Substance: CYCLOPHOSPHAMIDE
     Indication: Endometrial cancer
     Route: 065
     Dates: start: 202109
  14. EPIRUBICIN [Concomitant]
     Active Substance: EPIRUBICIN
     Indication: Endometrial cancer
     Route: 065
     Dates: start: 202109
  15. TAMOXIFEN [Concomitant]
     Active Substance: TAMOXIFEN
     Indication: Endometrial cancer
     Route: 065
     Dates: start: 20211115
  16. TISLELIZUMAB [Concomitant]
     Active Substance: TISLELIZUMAB
     Indication: Endometrial cancer
     Route: 065
     Dates: start: 20211209

REACTIONS (4)
  - Proteinuria [Recovering/Resolving]
  - Thyroiditis acute [Unknown]
  - Myelosuppression [Unknown]
  - Off label use [Unknown]

NARRATIVE: CASE EVENT DATE: 20210601
